FAERS Safety Report 9607297 (Version 1)
Quarter: 2013Q3

REPORT INFORMATION
  Report Type: Spontaneous
  Country: US (occurrence: None)
  Receive Date: 20130927
  Receipt Date: 20130927
  Transmission Date: 20140515
  Serious: Yes (Other)
  Sender: FDA-Public Use
  Company Number: 1646426

PATIENT
  Age: 51 Year
  Sex: Male
  Weight: 156 kg

DRUGS (7)
  1. VANCOMYCIN HYDROCHLORIDE FOR INJECTION USP [Suspect]
     Indication: ABSCESS
     Dosage: 2750 MILLIGRAM(S), 1 HOUR,  INTRAVENOUS (NOT OTHERWISE SPECIFIED)
     Route: 042
     Dates: start: 20121109, end: 20121109
  2. VANCOMYCIN HYDROCHLORIDE FOR INJECTION USP [Suspect]
     Indication: SEPSIS
     Dosage: 2750 MILLIGRAM(S), 1 HOUR,  INTRAVENOUS (NOT OTHERWISE SPECIFIED)
     Route: 042
     Dates: start: 20121109, end: 20121109
  3. (GENTAMICIN) [Suspect]
     Indication: PRODUCT USED FOR UNKNOWN INDICATION
     Dosage: 440 UNIT UNKNOWN, X 2, 1 HOUR, INTRAVENOUS (NOT OTHERWISE SPECIFIED)
     Route: 042
     Dates: start: 20121109, end: 20121110
  4. (NOREPINEPHRINE) [Suspect]
     Indication: HYPOTENSION
     Dosage: UNKNOWN, TITRATE, UNKNOWN, INTRAVENOUS
     Route: 042
     Dates: start: 20121109, end: 20121115
  5. (BUMEX) [Suspect]
     Indication: BURSAL FLUID ACCUMULATION
     Dosage: 2 MG MILLIGRAM(S), 1 HOUR, INTRAVENOUS (NOT OTHERWISE SPECIFIED)?
     Route: 042
     Dates: start: 20121109, end: 20121112
  6. (ZOSYN) [Concomitant]
  7. (FLAGYL /00012501/) [Concomitant]

REACTIONS (1)
  - Renal failure acute [None]
